FAERS Safety Report 10915791 (Version 1)
Quarter: 2015Q1

REPORT INFORMATION
  Report Type: Spontaneous
  Country: US (occurrence: None)
  Receive Date: 20150311
  Receipt Date: 20150311
  Transmission Date: 20150721
  Serious: Yes (Other)
  Sender: FDA-Public Use
  Company Number: None

PATIENT
  Age: 50 Year
  Sex: Male
  Weight: 78.93 kg

DRUGS (6)
  1. NALFON [Suspect]
     Active Substance: FENOPROFEN CALCIUM
     Indication: LIGAMENT SPRAIN
     Dosage: 400 MG, 1 PILL, 3 TIMES A DAY, 2 TIMES
     Dates: start: 20150122, end: 20150122
  2. NIFEDIPINE. [Concomitant]
     Active Substance: NIFEDIPINE
  3. HYDROCHLOROTHIZIDE [Concomitant]
     Active Substance: HYDROCHLOROTHIAZIDE
  4. SIMVASTATIN. [Concomitant]
     Active Substance: SIMVASTATIN
  5. MULTI VITAMINS [Concomitant]
  6. NAPROXEN. [Concomitant]
     Active Substance: NAPROXEN

REACTIONS (2)
  - Feeling abnormal [None]
  - Pain [None]

NARRATIVE: CASE EVENT DATE: 20150122
